FAERS Safety Report 23369407 (Version 1)
Quarter: 2024Q1

REPORT INFORMATION
  Report Type: Spontaneous
  Country: US (occurrence: None)
  Receive Date: 20240104
  Receipt Date: 20240104
  Transmission Date: 20240410
  Serious: No
  Sender: FDA-Public Use
  Company Number: None

PATIENT
  Age: 90 Year
  Sex: Female
  Weight: 38.56 kg

DRUGS (8)
  1. ERTAPENEM [Suspect]
     Active Substance: ERTAPENEM
     Indication: Urinary tract infection
     Dosage: FREQUENCY : DAILY;?
  2. VITAMIN A [Concomitant]
     Active Substance: VITAMIN A
  3. VITAMIN B6 [Concomitant]
     Active Substance: PYRIDOXINE HYDROCHLORIDE
  4. VITAMIN B12 [Concomitant]
     Active Substance: CYANOCOBALAMIN
  5. VITAMIN D3 [Concomitant]
     Active Substance: CHOLECALCIFEROL
  6. VITAMIN E [Concomitant]
     Active Substance: .ALPHA.-TOCOPHEROL
  7. COENZYME Q10 [Concomitant]
     Active Substance: DIETARY SUPPLEMENT\UBIDECARENONE
  8. ASPIRIN [Concomitant]
     Active Substance: ASPIRIN

REACTIONS (12)
  - Dizziness [None]
  - Tremor [None]
  - Anal incontinence [None]
  - Injection site swelling [None]
  - Nausea [None]
  - Fall [None]
  - Gait disturbance [None]
  - Eating disorder [None]
  - Weight decreased [None]
  - Dementia [None]
  - Disorientation [None]
  - Food allergy [None]

NARRATIVE: CASE EVENT DATE: 20231202
